FAERS Safety Report 5973223-8 (Version None)
Quarter: 2008Q4

REPORT INFORMATION
  Report Type: 
  Country: None (occurrence: None)
  Receive Date: 20081201
  Receipt Date: 20081201
  Transmission Date: 20090506
  Serious: Yes (Other)
  Sender: FDA-Public Use
  Company Number: US-RB-009291-08

PATIENT
  Sex: Female

DRUGS (4)
  1. SUBUTEX [Suspect]
     Dosage: ALTERNATES DAILY BETWEEN 4MG AND 6MG
     Route: 060
     Dates: start: 20080209
  2. SUBUTEX [Suspect]
     Dosage: ALTERNATES DAILY BETWEEN 2MG AND 4MG
     Route: 060
     Dates: end: 20080404
  3. SUBOXONE [Suspect]
     Route: 060
     Dates: start: 20071101, end: 20080208
  4. VITAMIN TAB [Concomitant]
     Indication: PREGNANCY
     Dosage: DOSE UNKNOWN
     Route: 048

REACTIONS (2)
  - ABORTION SPONTANEOUS [None]
  - DRUG EXPOSURE DURING PREGNANCY [None]
